FAERS Safety Report 10475159 (Version 1)
Quarter: 2014Q3

REPORT INFORMATION
  Report Type: Spontaneous
  Country: US (occurrence: None)
  Receive Date: 20140924
  Receipt Date: 20140924
  Transmission Date: 20150326
  Serious: No
  Sender: FDA-Public Use
  Company Number: None

PATIENT
  Age: 85 Year
  Sex: Male

DRUGS (1)
  1. MORPHINE SULFATE. [Suspect]
     Active Substance: MORPHINE SULFATE
     Route: 048

REACTIONS (4)
  - Intercepted drug administration error [None]
  - Circumstance or information capable of leading to medication error [None]
  - Product label issue [None]
  - Product label confusion [None]

NARRATIVE: CASE EVENT DATE: 20140921
